FAERS Safety Report 15359772 (Version 4)
Quarter: 2018Q4

REPORT INFORMATION
  Report Type: Spontaneous
  Country: US (occurrence: US)
  Receive Date: 20180907
  Receipt Date: 20181023
  Transmission Date: 20190204
  Serious: Yes (Other)
  Sender: FDA-Public Use
  Company Number: US-ASTRAZENECA-2018SF12663

PATIENT
  Age: 25424 Day
  Sex: Male
  Weight: 89.4 kg

DRUGS (12)
  1. AMLODIPINE [Concomitant]
     Active Substance: AMLODIPINE BESYLATE
     Route: 048
     Dates: start: 20180817
  2. BYDUREON [Suspect]
     Active Substance: EXENATIDE
     Indication: TYPE 2 DIABETES MELLITUS
     Route: 058
     Dates: start: 2015
  3. BYDUREON [Suspect]
     Active Substance: EXENATIDE
     Indication: TYPE 2 DIABETES MELLITUS
     Route: 058
     Dates: end: 20180824
  4. BYDUREON [Suspect]
     Active Substance: EXENATIDE
     Indication: TYPE 2 DIABETES MELLITUS
     Route: 058
     Dates: start: 20150325
  5. BYDUREON [Suspect]
     Active Substance: EXENATIDE
     Indication: TYPE 2 DIABETES MELLITUS
     Route: 058
     Dates: start: 201508, end: 2018
  6. BYDUREON [Suspect]
     Active Substance: EXENATIDE
     Indication: TYPE 2 DIABETES MELLITUS
     Route: 058
     Dates: end: 20180817
  7. BYDUREON BCISE [Suspect]
     Active Substance: EXENATIDE
     Route: 065
  8. PREVNAR 13 [Concomitant]
     Active Substance: PNEUMOCOCCAL 13-VALENT CONJUGATE VACCINE
     Route: 030
     Dates: start: 20170915
  9. OLMESARTAN [Concomitant]
     Active Substance: OLMESARTAN
  10. JARDIANCE [Concomitant]
     Active Substance: EMPAGLIFLOZIN
     Route: 048
     Dates: start: 20180817
  11. METFORMIN [Concomitant]
     Active Substance: METFORMIN HYDROCHLORIDE
     Route: 048
     Dates: start: 20180808, end: 20180824
  12. NATEGLINIDE. [Concomitant]
     Active Substance: NATEGLINIDE
     Dosage: TAKE 1 TABLET (120 MG) BY ORAL ROUTE 3 TIMES PER DAY 1 TO 30 MINUTES PRIOR TO MEALS FOR 30 DAYS
     Route: 048
     Dates: start: 20180817, end: 20180824

REACTIONS (17)
  - Vertigo [Unknown]
  - Dizziness [Unknown]
  - Hepatic enzyme increased [Recovered/Resolved]
  - Neutrophil count increased [Unknown]
  - Lymphocyte count decreased [Unknown]
  - Asthenia [Unknown]
  - White blood cell count increased [Unknown]
  - Jaundice [Unknown]
  - Haematuria [Unknown]
  - Lipase increased [Unknown]
  - Aortic arteriosclerosis [Unknown]
  - Blood glucose increased [Unknown]
  - Nausea [Unknown]
  - Low density lipoprotein increased [Recovered/Resolved]
  - Constipation [Unknown]
  - Abdominal pain [Unknown]
  - Malaise [Unknown]

NARRATIVE: CASE EVENT DATE: 20180820
